FAERS Safety Report 5477218-2 (Version None)
Quarter: 2007Q4

REPORT INFORMATION
  Report Type: 
  Country: None (occurrence: None)
  Receive Date: 20071004
  Receipt Date: 20071001
  Transmission Date: 20080405
  Serious: Yes (Hospitalization)
  Sender: FDA-Public Use
  Company Number: D0054549B

PATIENT
  Age: 33 Year
  Sex: Female
  Weight: 77 kg

DRUGS (2)
  1. LAMICTAL [Suspect]
     Indication: EPILEPSY
     Dosage: 50MG TWICE PER DAY
     Route: 048
     Dates: start: 20030301
  2. FOLIC ACID [Concomitant]
     Route: 065
     Dates: start: 20030501

REACTIONS (3)
  - DELIVERY [None]
  - HAEMOGLOBIN DECREASED [None]
  - VAGINAL HAEMORRHAGE [None]
